FAERS Safety Report 16123893 (Version 1)
Quarter: 2019Q1

REPORT INFORMATION
  Report Type: Spontaneous
  Country: FR (occurrence: FR)
  Receive Date: 20190327
  Receipt Date: 20190327
  Transmission Date: 20190418
  Serious: Yes (Hospitalization)
  Sender: FDA-Public Use
  Company Number: FR-ANIPHARMA-2019-FR-000058

PATIENT
  Age: 45 Year
  Sex: Male
  Weight: 96 kg

DRUGS (8)
  1. HYGROTON [Suspect]
     Active Substance: CHLORTHALIDONE
     Dosage: 50 MG DAILY
     Route: 048
     Dates: end: 20190206
  2. BISOPROLOL [Concomitant]
     Active Substance: BISOPROLOL
     Dosage: UNK
     Route: 065
  3. AMOXICILLINE CLAVULAANZUUR [Suspect]
     Active Substance: AMOXICILLIN\CLAVULANIC ACID
     Dosage: 1 G UNK
     Route: 048
     Dates: start: 201901, end: 20190206
  4. CANDESARTAN CILEXETIL. [Suspect]
     Active Substance: CANDESARTAN CILEXETIL
     Indication: HYPERTENSION
     Dosage: 6 MG DAILY
     Route: 048
     Dates: end: 20190215
  5. CARDURAN [Suspect]
     Active Substance: DOXAZOSIN MESYLATE
     Dosage: 1 DF DAILY
     Route: 048
     Dates: end: 20190206
  6. AMLODIPINE [Concomitant]
     Active Substance: AMLODIPINE BESYLATE
     Dosage: UNKM
     Route: 065
  7. ATORVASTATIN [Suspect]
     Active Substance: ATORVASTATIN
     Dosage: 20 MG DAILY
     Route: 048
     Dates: end: 20190215
  8. KARDEGIC [Suspect]
     Active Substance: ASPIRIN DL-LYSINE
     Dosage: UNK
     Route: 048
     Dates: start: 201901, end: 20190206

REACTIONS (1)
  - Drug reaction with eosinophilia and systemic symptoms [Recovered/Resolved]

NARRATIVE: CASE EVENT DATE: 20190206
